FAERS Safety Report 20076526 (Version 1)
Quarter: 2021Q4

REPORT INFORMATION
  Report Type: Report from Study
  Country: CA (occurrence: CA)
  Receive Date: 20211116
  Receipt Date: 20211116
  Transmission Date: 20220303
  Serious: Yes (Hospitalization)
  Sender: FDA-Public Use
  Company Number: CA-JNJFOC-20211123730

PATIENT
  Age: 48 Year
  Sex: Male
  Weight: 97.6 kg

DRUGS (1)
  1. REMICADE [Suspect]
     Active Substance: INFLIXIMAB
     Indication: Colitis ulcerative
     Route: 042
     Dates: start: 20150505

REACTIONS (2)
  - Sepsis [Unknown]
  - Dehydration [Unknown]

NARRATIVE: CASE EVENT DATE: 20211103
